FAERS Safety Report 8512744-0 (Version None)
Quarter: 2012Q3

REPORT INFORMATION
  Report Type: 
  Country: None (occurrence: None)
  Receive Date: 20120716
  Receipt Date: 20120709
  Transmission Date: 20120928
  Serious: No
  Sender: FDA-Public Use
  Company Number: US-PFIZER INC-2012078787

PATIENT
  Sex: Female

DRUGS (1)
  1. CHANTIX [Suspect]
     Indication: SMOKING CESSATION THERAPY
     Dosage: 0.5 MG, 1X/DAY
     Route: 048
     Dates: start: 20120315, end: 20120320

REACTIONS (6)
  - DRUG HYPERSENSITIVITY [None]
  - ABDOMINAL PAIN UPPER [None]
  - MALAISE [None]
  - EPISTAXIS [None]
  - VOMITING [None]
  - HEADACHE [None]
